FAERS Safety Report 4822442-2 (Version None)
Quarter: 2005Q4

REPORT INFORMATION
  Report Type: 
  Country: None (occurrence: None)
  Receive Date: 20051104
  Receipt Date: 20051104
  Transmission Date: 20060501
  Serious: Yes (Death)
  Sender: FDA-Public Use
  Company Number: None

PATIENT
  Age: 62 Year
  Sex: Female

DRUGS (2)
  1. ANGIOMAX [Suspect]
     Dosage: INTRAVENOUS
     Route: 042
  2. INTEGRILIN [Suspect]
     Dosage: INTRAVENOUS
     Route: 042

REACTIONS (7)
  - CARDIO-RESPIRATORY ARREST [None]
  - DYSPNOEA [None]
  - HAEMATEMESIS [None]
  - HAEMOTHORAX [None]
  - HYPOTENSION [None]
  - MEDICATION ERROR [None]
  - NAUSEA [None]
